FAERS Safety Report 24427679 (Version 1)
Quarter: 2024Q4

REPORT INFORMATION
  Report Type: Spontaneous
  Country: JP (occurrence: JP)
  Receive Date: 20241011
  Receipt Date: 20241011
  Transmission Date: 20250114
  Serious: Yes (Death)
  Sender: SANDOZ
  Company Number: JP-asahikaseip-2024-AER-05684

PATIENT
  Age: 85 Year
  Sex: Male

DRUGS (1)
  1. RECLAST [Suspect]
     Active Substance: ZOLEDRONIC ACID
     Indication: Product used for unknown indication
     Dosage: ROUTE OF ADMIN (FREE TEXT): INTRAVENOUS DRIP
     Route: 041
     Dates: start: 20231026

REACTIONS (1)
  - Death [Fatal]
